FAERS Safety Report 4398510-9 (Version None)
Quarter: 2004Q3

REPORT INFORMATION
  Report Type: 
  Country: None (occurrence: None)
  Receive Date: 20040715
  Receipt Date: 20040712
  Transmission Date: 20050211
  Serious: Yes (Hospitalization)
  Sender: FDA-Public Use
  Company Number: US-GLAXOSMITHKLINE-A0517869A

PATIENT
  Sex: Male

DRUGS (7)
  1. AVANDIA [Suspect]
     Indication: DIABETES MELLITUS NON-INSULIN-DEPENDENT
     Route: 048
  2. LANOXIN [Suspect]
     Indication: ILL-DEFINED DISORDER
     Route: 048
  3. COUMADIN [Concomitant]
  4. HUMALOG [Concomitant]
  5. XANAX [Concomitant]
  6. LANOXIN [Concomitant]
  7. NITROGLYCERIN [Concomitant]

REACTIONS (3)
  - MUSCLE RUPTURE [None]
  - MUSCULOSKELETAL DISORDER [None]
  - PROSTATIC DISORDER [None]
